FAERS Safety Report 18176409 (Version 7)
Quarter: 2024Q3

REPORT INFORMATION
  Report Type: Report from Study
  Country: US (occurrence: US)
  Receive Date: 20200820
  Receipt Date: 20240923
  Transmission Date: 20241016
  Serious: Yes (Hospitalization, Other)
  Sender: TAKEDA
  Company Number: US-SHIRE-US202026432

PATIENT
  Age: 12 Year
  Sex: Male

DRUGS (7)
  1. IDURSULFASE [Suspect]
     Active Substance: IDURSULFASE
     Indication: Mucopolysaccharidosis II
     Dosage: UNK UNK, 1/WEEK
     Route: 042
     Dates: start: 20130211
  2. IDURSULFASE [Suspect]
     Active Substance: IDURSULFASE
     Dosage: 24 MILLIGRAM, 1/WEEK
     Route: 042
     Dates: start: 20210218
  3. IDURSULFASE [Suspect]
     Active Substance: IDURSULFASE
     Dosage: 24 MILLIGRAM, 1/WEEK
     Route: 042
     Dates: start: 202102
  4. IDURSULFASE [Suspect]
     Active Substance: IDURSULFASE
     Dosage: 24 MILLIGRAM, 1/WEEK
     Route: 042
     Dates: start: 202205
  5. IDURSULFASE [Suspect]
     Active Substance: IDURSULFASE
     Dosage: 24 MILLIGRAM, 1/WEEK
     Route: 042
  6. DIPHENHYDRAMINE [Concomitant]
     Active Substance: DIPHENHYDRAMINE
     Dosage: UNK
     Route: 065
  7. HEPARIN [Concomitant]
     Active Substance: HEPARIN SODIUM
     Dosage: UNK
     Route: 065

REACTIONS (4)
  - Vascular device infection [Recovered/Resolved]
  - Cardiac valve disease [Unknown]
  - Tooth abscess [Unknown]
  - Weight increased [Unknown]

NARRATIVE: CASE EVENT DATE: 20230217
